FAERS Safety Report 6974647-2 (Version None)
Quarter: 2010Q3

REPORT INFORMATION
  Report Type: 
  Country: None (occurrence: None)
  Receive Date: 20100909
  Receipt Date: 20081111
  Transmission Date: 20110219
  Serious: No
  Sender: FDA-Public Use
  Company Number: US-WYE-H06816108

PATIENT
  Sex: Female

DRUGS (3)
  1. PROTONIX [Suspect]
     Indication: GASTROOESOPHAGEAL REFLUX DISEASE
     Route: 048
     Dates: start: 20081031, end: 20081106
  2. SIMVASTATIN [Concomitant]
  3. ENALAPRIL [Concomitant]

REACTIONS (6)
  - COUGH [None]
  - DRUG ABUSE [None]
  - DYSPHONIA [None]
  - HYPERHIDROSIS [None]
  - HYPERSENSITIVITY [None]
  - PYREXIA [None]
